FAERS Safety Report 17855519 (Version 2)
Quarter: 2020Q2

REPORT INFORMATION
  Report Type: Spontaneous
  Country: EE (occurrence: EE)
  Receive Date: 20200603
  Receipt Date: 20200623
  Transmission Date: 20200714
  Serious: Yes (Hospitalization, Other)
  Sender: FDA-Public Use
  Company Number: EE-GLAXOSMITHKLINE-EE2020092086

PATIENT
  Age: 83 Year
  Sex: Female

DRUGS (2)
  1. XARELTO [Interacting]
     Active Substance: RIVAROXABAN
     Indication: ATRIAL FIBRILLATION
     Dosage: 15 MG, QD
     Route: 065
     Dates: start: 201901
  2. DICLOFENAC [Suspect]
     Active Substance: DICLOFENAC
     Indication: SURGERY
     Dosage: UNK
     Route: 048
     Dates: end: 2020

REACTIONS (6)
  - Haemoglobin decreased [Recovered/Resolved]
  - Contraindicated product administered [Unknown]
  - Muscle haemorrhage [Recovered/Resolved]
  - Cough [Recovered/Resolved]
  - Labelled drug-drug interaction medication error [Unknown]
  - Bronchitis [Recovered/Resolved]

NARRATIVE: CASE EVENT DATE: 2020
